FAERS Safety Report 11881846 (Version 1)
Quarter: 2015Q4

REPORT INFORMATION
  Report Type: Spontaneous
  Country: US (occurrence: None)
  Receive Date: 20151230
  Receipt Date: 20151230
  Transmission Date: 20160305
  Serious: Yes (Life-Threatening, Hospitalization, Disabling)
  Sender: FDA-Public Use
  Company Number: None

PATIENT
  Age: 50 Year
  Sex: Female
  Weight: 142.88 kg

DRUGS (22)
  1. TIGERBALM PATCHES [Concomitant]
  2. ICY HOT [Concomitant]
     Active Substance: MENTHOL\METHYL SALICYLATE
  3. SERTRALINE HCL [Concomitant]
     Active Substance: SERTRALINE HYDROCHLORIDE
  4. CARVEDILOL. [Concomitant]
     Active Substance: CARVEDILOL
  5. IBUPROPHEN [Concomitant]
     Active Substance: IBUPROFEN
  6. CERTRAZINE [Concomitant]
  7. GOLD BOND LOTION [Concomitant]
  8. ALPRAZOLAM. [Concomitant]
     Active Substance: ALPRAZOLAM
  9. ICY HOT PATCHES [Concomitant]
  10. PRENATAL  MULTIVITAMIN [Concomitant]
  11. DOXYCYCLINE HYCLATE 100 MG CAPSULES RX# 1113416-05355 MUTUAL 105 [Suspect]
     Active Substance: DOXYCYCLINE HYCLATE
     Indication: ALLERGY TO ARTHROPOD BITE
     Dosage: 1 CAPSULE FOR 10 DAYS
     Route: 048
     Dates: start: 20150704, end: 20150714
  12. CLOTRIMAZOLE. [Concomitant]
     Active Substance: CLOTRIMAZOLE
  13. ASSURED PATCHES MENTHOL [Concomitant]
  14. DOXYCYCLINE HYCLATE 100 MG CAPSULES RX# 1113416-05355 MUTUAL 105 [Suspect]
     Active Substance: DOXYCYCLINE HYCLATE
     Indication: BACTERIAL INFECTION
     Dosage: 1 CAPSULE FOR 10 DAYS
     Route: 048
     Dates: start: 20150704, end: 20150714
  15. BETAMETHASONE. [Concomitant]
     Active Substance: BETAMETHASONE
  16. ACTEMINOPHEN/COD [Concomitant]
  17. THERMACARE HEAT PATCHES [Concomitant]
  18. IRON (FERROUS SULFATE) [Concomitant]
  19. ZYRTEC ALLERGY MEDICINE [Concomitant]
  20. DOXYCYCLINE HYCLATE 100 MG CAPSULES RX# 1113416-05355 MUTUAL 105 [Suspect]
     Active Substance: DOXYCYCLINE HYCLATE
     Indication: CELLULITIS
     Dosage: 1 CAPSULE FOR 10 DAYS
     Route: 048
     Dates: start: 20150704, end: 20150714
  21. SIMETHICONE (DIMETHICONE) [Concomitant]
     Active Substance: DIMETHICONE
  22. CAPSICUM [Concomitant]
     Active Substance: CAPSICUM

REACTIONS (10)
  - Hypoaesthesia [None]
  - Haematochezia [None]
  - Peripheral swelling [None]
  - Erythema [None]
  - Amnesia [None]
  - Abdominal pain [None]
  - Cyanosis [None]
  - Insomnia [None]
  - Pain in extremity [None]
  - Multi-organ disorder [None]

NARRATIVE: CASE EVENT DATE: 20150704
